FAERS Safety Report 12627059 (Version 2)
Quarter: 2016Q4

REPORT INFORMATION
  Report Type: Spontaneous
  Country: US (occurrence: US)
  Receive Date: 20160805
  Receipt Date: 20161221
  Transmission Date: 20170207
  Serious: No
  Sender: FDA-Public Use
  Company Number: US-009507513-1608USA001820

PATIENT
  Sex: Male
  Weight: 88.44 kg

DRUGS (7)
  1. PROPECIA [Suspect]
     Active Substance: FINASTERIDE
     Indication: ALOPECIA
     Dosage: 1 MG, UNKNOWN
     Route: 065
     Dates: start: 20101029, end: 20130202
  2. FINASTERIDE. [Suspect]
     Active Substance: FINASTERIDE
     Indication: ALOPECIA
     Dosage: 5 MG, UNK
     Route: 065
     Dates: start: 201109, end: 201208
  3. PROSCAR [Suspect]
     Active Substance: FINASTERIDE
     Indication: ALOPECIA
     Dosage: 5 MG, UNK
     Route: 065
     Dates: start: 20110511
  4. ALPRAZOLAM. [Concomitant]
     Active Substance: ALPRAZOLAM
     Indication: PRODUCT USED FOR UNKNOWN INDICATION
     Dosage: UNK
     Route: 065
     Dates: start: 20100831
  5. FINASTERIDE. [Suspect]
     Active Substance: FINASTERIDE
     Indication: ALOPECIA
     Dosage: 5 MG, UNK
     Route: 065
     Dates: start: 201107, end: 201109
  6. FINASTERIDE. [Suspect]
     Active Substance: FINASTERIDE
     Dosage: 5 MG, UNK
     Route: 065
     Dates: start: 201208, end: 201303
  7. PROPRANOLOL [Concomitant]
     Active Substance: PROPRANOLOL\PROPRANOLOL HYDROCHLORIDE
     Indication: PRODUCT USED FOR UNKNOWN INDICATION
     Dosage: UNK
     Route: 065
     Dates: start: 20100831

REACTIONS (13)
  - Vasectomy [Unknown]
  - Erectile dysfunction [Recovered/Resolved]
  - Renal cyst [Unknown]
  - Depression [Not Recovered/Not Resolved]
  - Abdominal wall disorder [Unknown]
  - Anxiety [Not Recovered/Not Resolved]
  - Dysuria [Recovered/Resolved]
  - Drug administration error [Unknown]
  - Haemangioma [Unknown]
  - Hyperlipidaemia [Unknown]
  - Peyronie^s disease [Not Recovered/Not Resolved]
  - Sexual dysfunction [Recovered/Resolved]
  - Obsessive-compulsive disorder [Unknown]

NARRATIVE: CASE EVENT DATE: 20110511
